FAERS Safety Report 9681182 (Version 2)
Quarter: 2014Q1

REPORT INFORMATION
  Report Type: Spontaneous
  Country: US (occurrence: US)
  Receive Date: 20131111
  Receipt Date: 20140121
  Transmission Date: 20141002
  Serious: Yes (Other)
  Sender: FDA-Public Use
  Company Number: US-TEVA-443402USA

PATIENT
  Age: 21 Year
  Sex: Female
  Weight: 58.57 kg

DRUGS (1)
  1. PARAGARD 380A [Suspect]
     Indication: CONTRACEPTION
     Route: 015
     Dates: start: 20130903, end: 20131105

REACTIONS (1)
  - Device dislocation [Recovered/Resolved]
